FAERS Safety Report 19988551 (Version 2)
Quarter: 2021Q4

REPORT INFORMATION
  Report Type: Spontaneous
  Country: US (occurrence: US)
  Receive Date: 20211024
  Receipt Date: 20211105
  Transmission Date: 20220304
  Serious: No
  Sender: FDA-Public Use
  Company Number: US-JNJFOC-20211034723

PATIENT

DRUGS (1)
  1. STELARA [Suspect]
     Active Substance: USTEKINUMAB
     Indication: Psoriasis
     Route: 058

REACTIONS (1)
  - Drug ineffective [Unknown]
